FAERS Safety Report 9293530 (Version 3)
Quarter: 2013Q3

REPORT INFORMATION
  Report Type: Report from Study
  Country: IE (occurrence: IE)
  Receive Date: 20130516
  Receipt Date: 20130809
  Transmission Date: 20140515
  Serious: Yes (Other)
  Sender: FDA-Public Use
  Company Number: IE-GLAXOSMITHKLINE-B0883636A

PATIENT
  Sex: Male
  Weight: 75.5 kg

DRUGS (5)
  1. VOTRIENT [Suspect]
     Indication: RENAL CANCER
     Dosage: 800MG PER DAY
     Route: 048
     Dates: start: 20130115, end: 20130130
  2. VOTRIENT [Suspect]
     Indication: RENAL CANCER
     Dosage: 200MG PER DAY
     Route: 048
     Dates: start: 20130228, end: 20130404
  3. TRAMADOL [Concomitant]
  4. IMODIUM [Concomitant]
  5. TAMSULOSIN [Concomitant]

REACTIONS (3)
  - Femur fracture [Unknown]
  - Disease progression [Unknown]
  - Liver function test abnormal [Unknown]
